FAERS Safety Report 4920384-5 (Version None)
Quarter: 2006Q1

REPORT INFORMATION
  Report Type: 
  Country: None (occurrence: None)
  Receive Date: 20060223
  Receipt Date: 20051004
  Transmission Date: 20060701
  Serious: Yes (Hospitalization)
  Sender: FDA-Public Use
  Company Number: US-MERCK-0510USA03863

PATIENT
  Age: 53 Year
  Sex: Female
  Weight: 90 kg

DRUGS (23)
  1. VIOXX [Suspect]
     Indication: SYSTEMIC LUPUS ERYTHEMATOSUS
     Route: 048
     Dates: start: 19990801, end: 20041012
  2. VIOXX [Suspect]
     Indication: PAIN
     Route: 048
     Dates: start: 19990801, end: 20041012
  3. FUROSEMIDE [Concomitant]
     Indication: HYPERTENSION
     Route: 065
     Dates: start: 20000701, end: 20010701
  4. ACETAMINOPHEN AND PROPOXYPHENE NAPSYLATE [Concomitant]
     Indication: PAIN
     Route: 065
     Dates: start: 20000201, end: 20001001
  5. CEPHALEXIN [Concomitant]
     Route: 065
  6. ULTRACET [Concomitant]
     Indication: PAIN
     Route: 065
     Dates: start: 20031101, end: 20040401
  7. ZAROXOLYN [Concomitant]
     Indication: HYPERTENSION
     Route: 065
     Dates: start: 20001001, end: 20021001
  8. HYDROCHLOROTHIAZIDE [Concomitant]
     Indication: HYPERTENSION
     Route: 065
     Dates: start: 20050101
  9. HYDROXYCHLOROQUINE SULFATE [Concomitant]
     Indication: SYSTEMIC LUPUS ERYTHEMATOSUS
     Route: 065
     Dates: start: 19990201, end: 20021201
  10. FOSAMAX [Concomitant]
     Indication: OSTEOPOROSIS
     Route: 065
     Dates: start: 20001001, end: 20020101
  11. PREVACID [Concomitant]
     Indication: GASTRIC DISORDER
     Route: 065
  12. HYDROCHLOROTHIAZIDE AND TRIAMTERENE [Concomitant]
     Indication: HYPERTENSION
     Route: 065
     Dates: start: 20040101, end: 20040201
  13. WARFARIN [Concomitant]
     Route: 065
     Dates: start: 20020301
  14. PREDNISONE [Concomitant]
     Route: 065
     Dates: start: 19990201, end: 20020301
  15. METHOTREXATE [Concomitant]
     Indication: PAIN
     Route: 065
     Dates: start: 20000401, end: 20010701
  16. K-DUR 10 [Concomitant]
     Indication: CARDIAC DISORDER
     Route: 065
     Dates: start: 20000701, end: 20010701
  17. FOLIC ACID [Concomitant]
     Route: 065
     Dates: start: 20010701, end: 20020401
  18. KLOR-CON [Concomitant]
     Indication: CARDIAC DISORDER
     Route: 065
     Dates: start: 20011201, end: 20040201
  19. NAPROXEN [Concomitant]
     Indication: PAIN
     Route: 065
     Dates: start: 20000201, end: 20000301
  20. LODINE [Concomitant]
     Indication: PAIN
     Route: 065
     Dates: start: 20000501, end: 20000601
  21. ACETAMINOPHEN AND HYDROCODONE BITARTRATE [Concomitant]
     Indication: PAIN
     Route: 065
     Dates: start: 20020401, end: 20040701
  22. IBUPROFEN [Concomitant]
     Indication: PAIN
     Route: 065
     Dates: start: 20041001, end: 20041101
  23. MOBIC [Concomitant]
     Indication: PAIN
     Route: 065
     Dates: start: 20041001

REACTIONS (15)
  - ANAEMIA [None]
  - COLONIC POLYP [None]
  - DEEP VEIN THROMBOSIS [None]
  - DIABETES MELLITUS [None]
  - DRUG TOXICITY [None]
  - DYSPEPSIA [None]
  - GASTRITIS [None]
  - GASTROINTESTINAL DISORDER [None]
  - HAEMATOCHEZIA [None]
  - HYPERCOAGULATION [None]
  - HYPERHOMOCYSTEINAEMIA [None]
  - HYPOALBUMINAEMIA [None]
  - LOWER GASTROINTESTINAL HAEMORRHAGE [None]
  - METABOLIC ALKALOSIS [None]
  - THROMBOCYTOPENIA [None]
